FAERS Safety Report 24268786 (Version 1)
Quarter: 2024Q3

REPORT INFORMATION
  Report Type: Spontaneous
  Country: US (occurrence: None)
  Receive Date: 20240829
  Receipt Date: 20240829
  Transmission Date: 20241017
  Serious: Yes (Life-Threatening, Hospitalization, Disabling, Other)
  Sender: Public
  Company Number: None

PATIENT
  Age: 72 Year
  Sex: Female
  Weight: 63 kg

DRUGS (1)
  1. DOSTARLIMAB [Suspect]
     Active Substance: DOSTARLIMAB
     Dosage: OTHER QUANTITY : 1 INJECTION(S);?OTHER FREQUENCY : ONE INFUSION;?

REACTIONS (7)
  - Vision blurred [None]
  - Diplopia [None]
  - Muscle disorder [None]
  - Dysphagia [None]
  - Dysphonia [None]
  - Gait disturbance [None]
  - Abdominal discomfort [None]

NARRATIVE: CASE EVENT DATE: 20240710
